FAERS Safety Report 24713339 (Version 1)
Quarter: 2024Q4

REPORT INFORMATION
  Report Type: Spontaneous
  Country: US (occurrence: US)
  Receive Date: 20241209
  Receipt Date: 20241209
  Transmission Date: 20250115
  Serious: No
  Sender: REGENERON
  Company Number: US-REGENERON PHARMACEUTICALS, INC.-2024-028712

PATIENT
  Sex: Male

DRUGS (5)
  1. EYLEA [Suspect]
     Active Substance: AFLIBERCEPT
     Indication: Neovascular age-related macular degeneration
     Dosage: UNK, Q4W (ORIGINALLY EVERY 4 WEEKS) INTO RIGHT EYE; FORMULATION: UNKNOWN
     Route: 031
     Dates: start: 2023
  2. EYLEA [Suspect]
     Active Substance: AFLIBERCEPT
     Indication: Choroidal neovascularisation
     Dosage: UNK, Q6W (NOW GETTING EVERY 6 WEEKS) INTO RIGHT EYE; FORMULATION: UNKNOWN
     Route: 031
  3. ENTRESTO [Concomitant]
     Active Substance: SACUBITRIL\VALSARTAN
     Indication: Cardiac failure congestive
  4. MINERALS\VITAMINS [Concomitant]
     Active Substance: MINERALS\VITAMINS
     Indication: Product used for unknown indication
     Dosage: 2 IN MORNING AND 2 IN NIGHT
  5. TIMOLOL [Concomitant]
     Active Substance: TIMOLOL\TIMOLOL MALEATE
     Indication: Product used for unknown indication
     Dosage: IN THE MORNING TO RIGHT EYE
     Route: 031

REACTIONS (4)
  - Visual impairment [Unknown]
  - Vision blurred [Unknown]
  - Eye swelling [Unknown]
  - Drug ineffective [Unknown]
